FAERS Safety Report 12678823 (Version 4)
Quarter: 2016Q4

REPORT INFORMATION
  Report Type: Spontaneous
  Country: NL (occurrence: NL)
  Receive Date: 20160824
  Receipt Date: 20161103
  Transmission Date: 20170207
  Serious: Yes (Death, Other)
  Sender: FDA-Public Use
  Company Number: NL-AMGEN-NLDSP2016108263

PATIENT
  Age: 61 Year
  Sex: Female
  Weight: 73 kg

DRUGS (4)
  1. ADRIAMYCIN [Concomitant]
     Active Substance: DOXORUBICIN HYDROCHLORIDE
     Indication: BREAST CANCER
     Dosage: 50 MG/M2, UNK
     Dates: start: 20160520, end: 20160520
  2. CYCLOPHOSPHAMIDE. [Concomitant]
     Active Substance: CYCLOPHOSPHAMIDE
     Indication: BREAST CANCER
     Dosage: 500 UNK, UNK (500/M2)
     Dates: start: 20160520
  3. NEULASTA [Suspect]
     Active Substance: PEGFILGRASTIM
     Indication: PROPHYLAXIS
     Dosage: 6 MG, ONE TIME DOSE
     Route: 058
     Dates: start: 20160521, end: 20160521
  4. TAXOTERE [Suspect]
     Active Substance: DOCETAXEL
     Indication: BREAST CANCER
     Dosage: 75 MG/M2, UNK
     Route: 065
     Dates: start: 20160520

REACTIONS (8)
  - Pseudomembranous colitis [Fatal]
  - Bone pain [Fatal]
  - Abdominal pain [Fatal]
  - Colitis ischaemic [Fatal]
  - Injection site ischaemia [Fatal]
  - Dehydration [Fatal]
  - Diarrhoea [Fatal]
  - Abdominal pain upper [Not Recovered/Not Resolved]

NARRATIVE: CASE EVENT DATE: 201605
